FAERS Safety Report 18109776 (Version 1)
Quarter: 2020Q3

REPORT INFORMATION
  Report Type: Spontaneous
  Country: CN (occurrence: CN)
  Receive Date: 20200804
  Receipt Date: 20200804
  Transmission Date: 20201103
  Serious: No
  Sender: FDA-Public Use
  Company Number: CN-B.BRAUN MEDICAL INC.-2088119

PATIENT
  Age: 76 Year
  Sex: Female
  Weight: 71.5 kg

DRUGS (1)
  1. NUTRILIPID I.V. FAT EMULSION [Suspect]
     Active Substance: SOYBEAN OIL

REACTIONS (2)
  - Hypoaesthesia [Recovered/Resolved]
  - Dizziness [Recovered/Resolved]
